FAERS Safety Report 17661927 (Version 1)
Quarter: 2020Q2

REPORT INFORMATION
  Report Type: Spontaneous
  Country: US (occurrence: US)
  Receive Date: 20200413
  Receipt Date: 20200413
  Transmission Date: 20200713
  Serious: Yes (Death)
  Sender: FDA-Public Use
  Company Number: None

PATIENT
  Age: 55 Year
  Sex: Female
  Weight: 76.5 kg

DRUGS (12)
  1. ZYLOPRIM 300MG ,ORAL [Concomitant]
  2. LOPERAMIDE AD 2MG,  ORAL; [Concomitant]
  3. ALBUTEROL SULFATE HFA, INHALER [Concomitant]
  4. OXYCODONE ACETAMINOPHEN, ORAL [Concomitant]
  5. METOPROLOL TARTRATE 50MG, ORAL [Concomitant]
  6. PREDNISONE 20MG, ORAL [Concomitant]
  7. ONDANSETRON 8MG ,ORAL [Concomitant]
  8. DECITABINE 50MG, ORAL [Concomitant]
  9. FUROSEMIDE 20MG, ORAL [Concomitant]
  10. BREO ELLIPTA, INHALER [Concomitant]
  11. VENCLEXTA [Suspect]
     Active Substance: VENETOCLAX
     Indication: ACUTE MYELOID LEUKAEMIA
     Route: 048
     Dates: start: 20200214, end: 20200413
  12. SODIUM CHLORIDE, 0.9%, IV [Concomitant]

REACTIONS (1)
  - Death [None]

NARRATIVE: CASE EVENT DATE: 20200413
